FAERS Safety Report 16719915 (Version 1)
Quarter: 2019Q3

REPORT INFORMATION
  Report Type: Spontaneous
  Country: CA (occurrence: CA)
  Receive Date: 20190820
  Receipt Date: 20190820
  Transmission Date: 20191005
  Serious: Yes (Other)
  Sender: FDA-Public Use
  Company Number: CA-ROCHE-2385104

PATIENT

DRUGS (1)
  1. OCREVUS [Suspect]
     Active Substance: OCRELIZUMAB
     Indication: MULTIPLE SCLEROSIS
     Dosage: NUMBER OF INFUSIONS: 2 FIRST AND 1, 6 MONTHS LATER
     Route: 065

REACTIONS (1)
  - Lung carcinoma cell type unspecified recurrent [Unknown]
